FAERS Safety Report 5944033-2 (Version None)
Quarter: 2008Q4

REPORT INFORMATION
  Report Type: 
  Country: None (occurrence: None)
  Receive Date: 20081106
  Receipt Date: 20081105
  Transmission Date: 20090506
  Serious: Yes (Death)
  Sender: FDA-Public Use
  Company Number: NO-B.I. PHARMACEUTICALS,INC./RIDGEFIELD-2008-SW-00288NO

PATIENT
  Sex: Male

DRUGS (7)
  1. PERSANTIN [Suspect]
     Indication: CEREBRAL INFARCTION
     Dosage: 400MG
     Route: 048
     Dates: start: 20080201, end: 20081021
  2. ALBYL-E [Suspect]
     Indication: MYOCARDIAL INFARCTION
     Dosage: 160MG
     Route: 048
     Dates: start: 20010101, end: 20081021
  3. DIOVAN [Concomitant]
     Indication: HYPERTENSION
     Dosage: 80MG
     Route: 048
  4. METFORMIN HCL [Concomitant]
     Indication: DIABETES MELLITUS
     Dosage: 1000 MG + 500 MG
     Route: 048
  5. INSULATARD [Concomitant]
     Indication: DIABETES MELLITUS
     Dosage: 29 IU + 15 IU
     Route: 058
  6. NOVORAPID [Concomitant]
     Indication: DIABETES MELLITUS
     Dosage: 12U
     Route: 058
  7. LIPITOR [Concomitant]
     Dosage: 10MG
     Route: 048

REACTIONS (1)
  - CEREBRAL HAEMORRHAGE [None]
